FAERS Safety Report 11351021 (Version 1)
Quarter: 2015Q3

REPORT INFORMATION
  Report Type: Spontaneous
  Country: US (occurrence: None)
  Receive Date: 20150806
  Receipt Date: 20150806
  Transmission Date: 20151125
  Serious: No
  Sender: FDA-Public Use
  Company Number: None

PATIENT
  Age: 64 Year
  Sex: Male
  Weight: 100 kg

DRUGS (3)
  1. PACLITAXEL. [Suspect]
     Active Substance: PACLITAXEL
  2. CARBOPLATIN. [Concomitant]
     Active Substance: CARBOPLATIN
  3. ETOPOSIDE. [Concomitant]
     Active Substance: ETOPOSIDE

REACTIONS (1)
  - Device malfunction [None]

NARRATIVE: CASE EVENT DATE: 20150803
